FAERS Safety Report 23048088 (Version 2)
Quarter: 2023Q4

REPORT INFORMATION
  Report Type: Spontaneous
  Country: US (occurrence: US)
  Receive Date: 20231010
  Receipt Date: 20231213
  Transmission Date: 20240110
  Serious: Yes (Other)
  Sender: FDA-Public Use
  Company Number: US-002147023-NVSC2023US214963

PATIENT
  Sex: Female

DRUGS (1)
  1. KESIMPTA [Suspect]
     Active Substance: OFATUMUMAB
     Indication: Multiple sclerosis
     Dosage: UNK
     Route: 065

REACTIONS (13)
  - Pain [Unknown]
  - Sciatica [Unknown]
  - Inflammation [Unknown]
  - Muscular weakness [Unknown]
  - Gait disturbance [Unknown]
  - Vertigo [Unknown]
  - Oropharyngeal pain [Unknown]
  - Nausea [Unknown]
  - Bone pain [Unknown]
  - Brain fog [Unknown]
  - Fatigue [Unknown]
  - Chest pain [Unknown]
  - Feeling abnormal [Unknown]
